FAERS Safety Report 10432105 (Version 5)
Quarter: 2021Q1

REPORT INFORMATION
  Report Type: Report from Study
  Country: BR (occurrence: BR)
  Receive Date: 20140905
  Receipt Date: 20210322
  Transmission Date: 20210419
  Serious: Yes (Hospitalization, Other)
  Sender: FDA-Public Use
  Company Number: BR-SHIRE-BR201405447

PATIENT
  Age: 10 Year
  Sex: Male
  Weight: 28 kg

DRUGS (6)
  1. APRESOLINE HYDROCHLORIDE [Concomitant]
     Active Substance: HYDRALAZINE HYDROCHLORIDE
     Indication: HYPERTENSION
     Dosage: 12.5 MG (HALF OF 25 MG TABLET), 4X/DAY:QID (Q6H)
     Route: 065
     Dates: start: 20140815
  2. SPIRONOLACTONE. [Concomitant]
     Active Substance: SPIRONOLACTONE
     Dosage: UNK, UNKNOWN (GRADUALLY DISCONTINUING)
     Route: 065
  3. CARVEDILOL. [Concomitant]
     Active Substance: CARVEDILOL
     Indication: CARDIAC VALVE DISEASE
     Dosage: 3.125 MG, 2X/DAY:BID (Q12H)
     Route: 065
     Dates: start: 2012
  4. IDURSULFASE [Suspect]
     Active Substance: IDURSULFASE
     Indication: MUCOPOLYSACCHARIDOSIS II
     Dosage: 0.5 MG/KG, 1X/WEEK
     Route: 041
     Dates: start: 20090828
  5. SPIRONOLACTONE. [Concomitant]
     Active Substance: SPIRONOLACTONE
     Indication: HYPERTENSION
     Dosage: 25 MG, 2X/DAY:BID (Q12H)
     Route: 065
     Dates: start: 20140815
  6. IDURSULFASE [Suspect]
     Active Substance: IDURSULFASE
     Dosage: 0.5 MG/KG (ALTERNATING), 1X/WEEK
     Route: 041
     Dates: start: 20090306

REACTIONS (4)
  - Tonsillar hypertrophy [Recovered/Resolved]
  - Bronchostenosis [Unknown]
  - Bronchospasm [Not Recovered/Not Resolved]
  - Adenoidal hypertrophy [Recovered/Resolved]

NARRATIVE: CASE EVENT DATE: 20140811
